FAERS Safety Report 6673842-X (Version None)
Quarter: 2010Q2

REPORT INFORMATION
  Report Type: 
  Country: None (occurrence: None)
  Receive Date: 20100407
  Receipt Date: 20100401
  Transmission Date: 20101027
  Serious: Yes (Hospitalization)
  Sender: FDA-Public Use
  Company Number: 2010SP016366

PATIENT
  Sex: Female

DRUGS (13)
  1. PEG-INTRON [Suspect]
     Indication: DRUG USE FOR UNKNOWN INDICATION
     Dosage: 150 MCG; QW;
     Dates: start: 20100207, end: 20100317
  2. RIBASPHERE [Suspect]
     Indication: DRUG USE FOR UNKNOWN INDICATION
     Dosage: 600 MG; BID;
     Dates: start: 20100207, end: 20100317
  3. ACETAMINOPHEN AND HYDROCODONE BITARTRATE [Concomitant]
  4. PROVENTIL [Concomitant]
  5. SPIRIVA [Concomitant]
  6. LASIX [Concomitant]
  7. ATENOLOL [Concomitant]
  8. FISH OIL [Concomitant]
  9. BIOTIN [Concomitant]
  10. SERTRALINE HCL [Concomitant]
  11. NITROSTAT [Concomitant]
  12. MULTI-VITAMIN [Concomitant]
  13. DIAZEPAM [Concomitant]

REACTIONS (4)
  - ABNORMAL BEHAVIOUR [None]
  - DISORIENTATION [None]
  - HALLUCINATION [None]
  - TREATMENT NONCOMPLIANCE [None]
